FAERS Safety Report 5613521-0 (Version None)
Quarter: 2008Q1

REPORT INFORMATION
  Report Type: 
  Country: None (occurrence: None)
  Receive Date: 20080205
  Receipt Date: 20080125
  Transmission Date: 20080703
  Serious: Yes (Death, Life-Threatening, Hospitalization)
  Sender: FDA-Public Use
  Company Number: CH-ELI_LILLY_AND_COMPANY-CH200801005009

PATIENT
  Age: 27 Year
  Sex: Female
  Weight: 62 kg

DRUGS (6)
  1. ZYPREXA [Suspect]
     Indication: SCHIZOAFFECTIVE DISORDER
     Dosage: 20 MG, DAILY (1/D)
     Route: 048
     Dates: start: 20030101, end: 20070524
  2. ZYPREXA [Suspect]
     Dosage: 280 MG, DAILY (1/D)
     Route: 048
     Dates: start: 20070525, end: 20070525
  3. ZYPREXA [Suspect]
     Dosage: 20 MG, DAILY (1/D)
     Route: 048
     Dates: start: 20070528, end: 20070602
  4. CIPRALEX [Concomitant]
     Dosage: 10 MG, OTHER
     Route: 048
     Dates: start: 20070101, end: 20070524
  5. CIPRALEX [Concomitant]
     Dosage: 280 MG, DAILY (1/D)
     Route: 048
     Dates: start: 20070525, end: 20070525
  6. CIPRALEX [Concomitant]
     Dosage: 20 MG, OTHER
     Route: 048
     Dates: start: 20070528, end: 20070603

REACTIONS (6)
  - COMPLETED SUICIDE [None]
  - INTENTIONAL OVERDOSE [None]
  - MANIA [None]
  - MULTIPLE DRUG OVERDOSE INTENTIONAL [None]
  - PARTNER STRESS [None]
  - SUICIDE ATTEMPT [None]
